APPROVED DRUG PRODUCT: ISOVUE-250
Active Ingredient: IOPAMIDOL
Strength: 51%
Dosage Form/Route: INJECTABLE;INJECTION
Application: N020327 | Product #002
Applicant: BRACCO DIAGNOSTICS INC
Approved: Oct 12, 1994 | RLD: Yes | RS: No | Type: DISCN